FAERS Safety Report 15413113 (Version 2)
Quarter: 2018Q4

REPORT INFORMATION
  Report Type: Spontaneous
  Country: FR (occurrence: FR)
  Receive Date: 20180921
  Receipt Date: 20181023
  Transmission Date: 20190204
  Serious: Yes (Hospitalization, Other)
  Sender: FDA-Public Use
  Company Number: FR-PFIZER INC-2018375714

PATIENT
  Age: 84 Year
  Sex: Female

DRUGS (9)
  1. LAMALINE (ATROPA BELLADONNA EXTRACT\CAFFEINE\PAPAVER SOMNIFERUM TINCTURE\PARACETAMOL) [Suspect]
     Active Substance: ACETAMINOPHEN\BELLADONNA LEAF\CAFFEINE\OPIUM
     Indication: PAIN
     Dosage: UNK
     Route: 048
     Dates: start: 201712, end: 20180220
  2. LYRICA [Suspect]
     Active Substance: PREGABALIN
     Indication: PAIN
     Dosage: UNK UNK, 1X/DAY
     Route: 048
     Dates: start: 201712, end: 20180220
  3. VERSATIS [Suspect]
     Active Substance: LIDOCAINE
     Indication: PAIN
     Dosage: 1 DF, 1X/DAY
     Route: 003
     Dates: start: 201712, end: 20180220
  4. SYMBICORT [Concomitant]
     Active Substance: BUDESONIDE\FORMOTEROL FUMARATE DIHYDRATE
     Dosage: UNK
  5. NEURONTIN [Suspect]
     Active Substance: GABAPENTIN
     Indication: PAIN
     Dosage: 300 MG, 1X/DAY
     Route: 048
     Dates: start: 201712, end: 20180220
  6. KARDEGIC [Concomitant]
     Active Substance: ASPIRIN DL-LYSINE
     Dosage: UNK
  7. LEVOTHYROX [Concomitant]
     Active Substance: LEVOTHYROXINE
     Dosage: UNK
  8. SINGULAIR [Concomitant]
     Active Substance: MONTELUKAST SODIUM
     Dosage: UNK
  9. EUPHYLLINE [THEOPHYLLINE] [Concomitant]
     Dosage: UNK

REACTIONS (4)
  - Encephalopathy [Recovered/Resolved]
  - Intracranial aneurysm [Unknown]
  - Carotid artery aneurysm [Unknown]
  - Dementia [Recovered/Resolved]

NARRATIVE: CASE EVENT DATE: 20180220
